FAERS Safety Report 14271255 (Version 2)
Quarter: 2018Q1

REPORT INFORMATION
  Report Type: Spontaneous
  Country: IT (occurrence: IT)
  Receive Date: 20171211
  Receipt Date: 20180103
  Transmission Date: 20180508
  Serious: Yes (Hospitalization)
  Sender: FDA-Public Use
  Company Number: IT-OTSUKA-2015_011528

PATIENT
  Sex: Female

DRUGS (2)
  1. PROGLICEM [Concomitant]
     Active Substance: DIAZOXIDE
     Indication: PRODUCT USED FOR UNKNOWN INDICATION
     Dosage: UNK
     Route: 065
  2. ABILIFY [Suspect]
     Active Substance: ARIPIPRAZOLE
     Indication: COMPULSIONS
     Dosage: 15 MG, QD
     Route: 048
     Dates: start: 20150730, end: 20150806

REACTIONS (3)
  - Dystonia [Recovered/Resolved with Sequelae]
  - Off label use [Unknown]
  - Rabbit syndrome [Recovered/Resolved with Sequelae]
